FAERS Safety Report 17053030 (Version 1)
Quarter: 2019Q4

REPORT INFORMATION
  Report Type: Spontaneous
  Country: US (occurrence: US)
  Receive Date: 20191120
  Receipt Date: 20191120
  Transmission Date: 20200122
  Serious: Yes (Hospitalization)
  Sender: FDA-Public Use
  Company Number: US-JNJFOC-20191114673

PATIENT
  Age: 67 Year
  Sex: Male

DRUGS (1)
  1. INVOKAMET [Suspect]
     Active Substance: CANAGLIFLOZIN\METFORMIN HYDROCHLORIDE
     Indication: PRODUCT USED FOR UNKNOWN INDICATION
     Dosage: 50-1000 MG
     Route: 048
     Dates: start: 20160524, end: 201701

REACTIONS (4)
  - Toe amputation [Unknown]
  - Osteomyelitis [Unknown]
  - Diabetic foot infection [Not Recovered/Not Resolved]
  - Necrotising fasciitis [Unknown]

NARRATIVE: CASE EVENT DATE: 20161115
